FAERS Safety Report 19421849 (Version 1)
Quarter: 2021Q2

REPORT INFORMATION
  Report Type: Spontaneous
  Country: FR (occurrence: FR)
  Receive Date: 20210615
  Receipt Date: 20210615
  Transmission Date: 20210717
  Serious: Yes (Other)
  Sender: FDA-Public Use
  Company Number: FR-SUN PHARMACEUTICAL INDUSTRIES LTD-2021RR-300737

PATIENT
  Age: 67 Year
  Sex: Male
  Weight: 80 kg

DRUGS (9)
  1. TAZOCILLINE [Suspect]
     Active Substance: PIPERACILLIN SODIUM\TAZOBACTAM SODIUM
     Indication: INFECTION
     Dosage: 4 GRAM, DAILY
     Route: 042
     Dates: start: 20210428, end: 20210429
  2. MIDAZOLAM. [Suspect]
     Active Substance: MIDAZOLAM
     Indication: SEDATION
     Dosage: 25 MILLIGRAM, 1DOSE/1HOUR, 1ST ADMINISTRATION TIME: D10
     Route: 042
     Dates: start: 20210419, end: 20210509
  3. URAPIDIL [Suspect]
     Active Substance: URAPIDIL
     Indication: HYPERTENSION
     Dosage: 232 MG, 13 MG / HOUR 1ST ADMINISTRATION TIME: D4 ()
     Route: 042
     Dates: start: 20210426, end: 20210430
  4. SUFENTANIL [Suspect]
     Active Substance: SUFENTANIL
     Indication: SEDATION
     Dosage: 10 UG / HOUR 1ST ADMINISTRATION TIME: D16 ()
     Route: 042
     Dates: start: 20210414, end: 20210524
  5. FUROSEMIDE. [Suspect]
     Active Substance: FUROSEMIDE
     Indication: HYPERTENSION
     Dosage: 40 MILLIGRAM, DAILY
     Route: 042
     Dates: start: 20210426, end: 20210430
  6. AMLODIPINE [Suspect]
     Active Substance: AMLODIPINE BESYLATE
     Indication: HYPERTENSION
     Dosage: 10 MILLIGRAM, DAILY
     Route: 048
     Dates: start: 20210510, end: 20210511
  7. PROPOFOL. [Suspect]
     Active Substance: PROPOFOL
     Indication: SEDATION
     Dosage: 200 MILLIGRAM, 1DOSE/1HOUR, 1ST ADMINISTRATION TIME: D16
     Route: 042
     Dates: start: 20210414, end: 20210511
  8. LOVENOX [Suspect]
     Active Substance: ENOXAPARIN SODIUM
     Indication: THROMBOSIS PROPHYLAXIS
     Dosage: 0.8 ML TWICE A DAY ()
     Route: 058
     Dates: start: 20210414
  9. NICARDIPINE (CHLORHYDRATE DE) [Suspect]
     Active Substance: NICARDIPINE HYDROCHLORIDE
     Indication: HYPERTENSION
     Dosage: 50 MILLIGRAM, DAILY, 2 MG / H 1ST ADMINISTRATION: D11
     Route: 042
     Dates: start: 20210418, end: 20210418

REACTIONS (1)
  - Drug reaction with eosinophilia and systemic symptoms [Recovering/Resolving]
